FAERS Safety Report 4958247-1 (Version None)
Quarter: 2006Q1

REPORT INFORMATION
  Report Type: 
  Country: None (occurrence: None)
  Receive Date: 20060330
  Receipt Date: 20060320
  Transmission Date: 20060701
  Serious: Yes (Hospitalization)
  Sender: FDA-Public Use
  Company Number: FR-GLAXOSMITHKLINE-B0417419A

PATIENT
  Age: 78 Year
  Sex: Male

DRUGS (6)
  1. SERETIDE DISKUS [Suspect]
     Indication: BRONCHOPNEUMOPATHY
     Route: 055
  2. AMLOR [Concomitant]
  3. BURINEX [Concomitant]
  4. PNEUMOREL [Concomitant]
  5. BIOCALYPTOL [Concomitant]
  6. OXYGEN [Concomitant]

REACTIONS (1)
  - INSULIN-REQUIRING TYPE II DIABETES MELLITUS [None]
